FAERS Safety Report 22250061 (Version 1)
Quarter: 2023Q2

REPORT INFORMATION
  Report Type: Spontaneous
  Country: US (occurrence: None)
  Receive Date: 20230421
  Receipt Date: 20230421
  Transmission Date: 20230721
  Serious: No
  Sender: FDA-Public Use
  Company Number: None

PATIENT
  Age: 78 Year
  Sex: Female
  Weight: 171.7 kg

DRUGS (10)
  1. VERZENIO [Suspect]
     Active Substance: ABEMACICLIB
     Dosage: FREQUENCY : EVERY 12 HOURS;?
     Route: 048
     Dates: end: 20230420
  2. ANASTROZOLE [Concomitant]
     Active Substance: ANASTROZOLE
  3. CALTRATE [Concomitant]
     Active Substance: CALCIUM CARBONATE
  4. CEFDINIR [Concomitant]
     Active Substance: CEFDINIR
  5. CRESTOR [Concomitant]
     Active Substance: ROSUVASTATIN CALCIUM
  6. DEXAMETHASONE [Concomitant]
     Active Substance: DEXAMETHASONE
  7. DILTIAZEM [Concomitant]
     Active Substance: DILTIAZEM
  8. HUMALOG [Concomitant]
     Active Substance: INSULIN LISPRO
  9. LANTUS SOLOSTAR [Concomitant]
     Active Substance: INSULIN GLARGINE
  10. VITAMIN D [Concomitant]
     Active Substance: VITAMIN D NOS

REACTIONS (1)
  - Nephropathy toxic [None]
